FAERS Safety Report 12668009 (Version 9)
Quarter: 2019Q4

REPORT INFORMATION
  Report Type: Report from Study
  Country: US (occurrence: US)
  Receive Date: 20160819
  Receipt Date: 20191101
  Transmission Date: 20200122
  Serious: Yes (Other)
  Sender: FDA-Public Use
  Company Number: PHHY2016US112977

PATIENT
  Age: 32 Year
  Sex: Male

DRUGS (1)
  1. GILENYA [Suspect]
     Active Substance: FINGOLIMOD HYDROCHLORIDE
     Indication: MULTIPLE SCLEROSIS
     Dosage: UNK, QD
     Route: 048

REACTIONS (7)
  - Upper respiratory tract infection [Recovered/Resolved]
  - Streptococcal infection [Recovered/Resolved]
  - Blood alkaline phosphatase increased [Unknown]
  - Lymphocyte count decreased [Recovered/Resolved]
  - Bronchitis [Recovered/Resolved]
  - Bronchiolitis [Recovered/Resolved]
  - Alanine aminotransferase abnormal [Unknown]

NARRATIVE: CASE EVENT DATE: 20150430
